FAERS Safety Report 9238902 (Version 1)
Quarter: 2013Q2

REPORT INFORMATION
  Report Type: Spontaneous
  Country: US (occurrence: US)
  Receive Date: 20130418
  Receipt Date: 20130418
  Transmission Date: 20140414
  Serious: Yes (Other)
  Sender: FDA-Public Use
  Company Number: US-JNJFOC-20130405282

PATIENT
  Sex: Female

DRUGS (6)
  1. XARELTO [Suspect]
     Indication: CEREBROVASCULAR ACCIDENT PROPHYLAXIS
     Route: 048
     Dates: start: 2012
  2. XARELTO [Suspect]
     Indication: ATRIAL FIBRILLATION
     Route: 048
     Dates: start: 2012
  3. FLECAINIDE [Concomitant]
     Route: 065
  4. PRILOSEC [Concomitant]
     Route: 065
  5. CRESTOR [Concomitant]
     Route: 065
  6. BUSPAR [Concomitant]
     Route: 065

REACTIONS (2)
  - Raynaud^s phenomenon [Not Recovered/Not Resolved]
  - Tinnitus [Recovering/Resolving]
